FAERS Safety Report 24964525 (Version 2)
Quarter: 2025Q2

REPORT INFORMATION
  Report Type: Report from Study
  Country: FR (occurrence: FR)
  Receive Date: 20250213
  Receipt Date: 20250415
  Transmission Date: 20250716
  Serious: Yes (Life-Threatening, Hospitalization)
  Sender: NOVARTIS
  Company Number: FR-002147023-NVSC2025FR013038

PATIENT
  Sex: Female
  Weight: 62 kg

DRUGS (10)
  1. SCEMBLIX [Suspect]
     Active Substance: ASCIMINIB HYDROCHLORIDE
     Indication: Philadelphia positive chronic myeloid leukaemia
     Dosage: 40 MG, BID (TOTAL DAILY DOSE)
     Route: 048
     Dates: start: 20240930
  2. SCEMBLIX [Suspect]
     Active Substance: ASCIMINIB HYDROCHLORIDE
     Indication: Chronic myeloid leukaemia
  3. INSULIN NOS [Concomitant]
     Active Substance: INSULIN NOS
     Indication: Product used for unknown indication
     Route: 065
     Dates: start: 2024
  4. XARELTO [Concomitant]
     Active Substance: RIVAROXABAN
     Indication: Product used for unknown indication
     Dosage: 15 MG, QD
     Route: 065
     Dates: start: 202101
  5. Lacteol [Concomitant]
     Indication: Product used for unknown indication
     Route: 065
     Dates: start: 202501
  6. LEVOTHYROXINE [Concomitant]
     Active Substance: LEVOTHYROXINE
     Indication: Product used for unknown indication
     Route: 065
     Dates: start: 202101
  7. FUROSEMIDE [Concomitant]
     Active Substance: FUROSEMIDE
     Indication: Product used for unknown indication
     Dosage: 250 MG, BID
     Route: 065
     Dates: start: 202101
  8. REPAGLINIDE [Concomitant]
     Active Substance: REPAGLINIDE
     Indication: Product used for unknown indication
     Dosage: 0.5 MG, TID
     Route: 065
     Dates: start: 202401
  9. BISOPROLOL [Concomitant]
     Active Substance: BISOPROLOL
     Indication: Product used for unknown indication
     Route: 065
     Dates: start: 202101
  10. LANSOPRAZOLE [Concomitant]
     Active Substance: LANSOPRAZOLE
     Indication: Product used for unknown indication
     Route: 065
     Dates: start: 202409

REACTIONS (1)
  - Pneumonia [Recovered/Resolved]

NARRATIVE: CASE EVENT DATE: 20241208
